FAERS Safety Report 7422971-1 (Version None)
Quarter: 2011Q2

REPORT INFORMATION
  Report Type: 
  Country: None (occurrence: None)
  Receive Date: 20110419
  Receipt Date: 20110416
  Transmission Date: 20111010
  Serious: Yes (Life-Threatening, Hospitalization)
  Sender: FDA-Public Use
  Company Number: US-BRISTOL-MYERS SQUIBB COMPANY-15155872

PATIENT
  Age: 61 Year
  Sex: Male

DRUGS (32)
  1. PREDNISONE [Concomitant]
  2. CORTISONE CREAM [Concomitant]
     Indication: PRURITUS
     Dosage: D/C X 3 DAYS
  3. PLAVIX [Concomitant]
  4. ATIVAN [Concomitant]
     Indication: ANXIETY
     Dosage: THREE TIMES DAILY AS NECESSARY FO ANXIETY
  5. MAALOX [Concomitant]
     Dosage: 60CC,MAGIC MOUTHWASH
  6. NORMAL SALINE [Concomitant]
  7. LEVOTHYROXINE SODIUM [Concomitant]
  8. LISINOPRIL [Concomitant]
     Route: 048
  9. NORVASC [Concomitant]
     Indication: HYPERTENSION
     Route: 048
     Dates: start: 20050101
  10. ZYRTEC [Concomitant]
     Indication: PRURITUS
     Dosage: D/C X 3 DAYS
  11. DIFLUCAN [Concomitant]
     Indication: ORAL CANDIDIASIS
  12. LIDOCAINE [Concomitant]
     Dosage: VISCOUS 20CC
  13. OMEPRAZOLE [Concomitant]
     Route: 048
  14. TRIAMCINOLONE [Concomitant]
     Indication: PRURITUS
  15. AMBIEN [Concomitant]
     Indication: INSOMNIA
  16. PROZAC [Concomitant]
     Indication: DEPRESSION
     Route: 048
     Dates: start: 20091001
  17. METOPROLOL TARTRATE [Concomitant]
  18. BENADRYL [Concomitant]
  19. CYMBALTA [Concomitant]
     Route: 048
  20. HYDROCHLOROTHIAZIDE [Concomitant]
     Indication: HYPERTENSION
     Dates: start: 20050101
  21. OXYCONTIN [Concomitant]
     Indication: PAIN
     Dosage: DAILY,5 MG/5CC,TAKE 5CC PO 1 HR BEFORE EATING PRN
     Route: 048
     Dates: start: 20050101
  22. LORAZEPAM [Concomitant]
     Indication: ANXIETY
     Dosage: 0.5?MG
     Route: 048
     Dates: start: 20091001
  23. CRESTOR [Concomitant]
  24. FLUDROCORTISONE [Concomitant]
  25. PERCOCET TABS 5 MG/325 MG [Concomitant]
     Dosage: 1 TO 2 TAB EVERY 4TO6 HRS
  26. AMOXICILLIN [Concomitant]
     Dosage: 1 TAB EVERY 12 HRS X 10 DAYS
  27. CYMBALTA [Concomitant]
     Indication: DEPRESSION
     Route: 048
     Dates: start: 20090101
  28. ASPIRIN [Concomitant]
     Dosage: 325MG
     Route: 048
  29. LISINOPRIL [Concomitant]
  30. OXYCODONE [Concomitant]
  31. IPILIMUMAB [Suspect]
     Indication: MALIGNANT MELANOMA
     Dosage: DOSE=3MG/KG.NO OF COURSES:3
     Route: 042
     Dates: start: 20100414, end: 20100609
  32. PROTONIX [Concomitant]
     Dosage: PROTONIX 40 MG TBEC
     Route: 048

REACTIONS (5)
  - GASTROINTESTINAL HAEMORRHAGE [None]
  - PHARYNGITIS [None]
  - HYPOPHYSITIS [None]
  - FAILURE TO THRIVE [None]
  - MYOCARDIAL INFARCTION [None]
